FAERS Safety Report 8406573-6 (Version None)
Quarter: 2012Q2

REPORT INFORMATION
  Report Type: 
  Country: None (occurrence: None)
  Receive Date: 20120529
  Receipt Date: 20110628
  Transmission Date: 20120825
  Serious: Yes (Life-Threatening, Other)
  Sender: FDA-Public Use
  Company Number: JP-2011-10602

PATIENT
  Age: 60 Year
  Sex: Female
  Weight: 70 kg

DRUGS (10)
  1. ACINON (NIZATIDINE) TABLET [Concomitant]
  2. GLYCEOL (FRUCTOSE, GLYCEROL) [Concomitant]
  3. ATELEC (CILNIDIPINE) TABLET [Concomitant]
  4. BIOFERMIN (BACILLUS SUBTILIS, LACTOBACILLUS ACIDOPHILUS, STREPTOCOCCUS [Concomitant]
  5. DAI-KENCHU-TO (DAI-KENCHU-TO) [Concomitant]
  6. HOCHU-EKKI-TO (HOCHU-EKKI-TO) [Concomitant]
  7. FLUMARIN (FLOMOXEF SODIUM) [Concomitant]
  8. ERIL (FASUDIL HYDROCHLORIDE) [Concomitant]
  9. PRIMPERAN INJ [Concomitant]
  10. PLETAL [Suspect]
     Indication: CEREBROVASCULAR SPASM
     Dosage: 100 MG MILLIGRAM(S), BID, PARENTERAL
     Route: 051
     Dates: start: 20110325, end: 20110329

REACTIONS (7)
  - PYREXIA [None]
  - MENINGITIS [None]
  - TACHYCARDIA [None]
  - HYPOTENSION [None]
  - CONDITION AGGRAVATED [None]
  - CARDIAC FAILURE [None]
  - DEHYDRATION [None]
